FAERS Safety Report 21155993 (Version 1)
Quarter: 2022Q3

REPORT INFORMATION
  Report Type: Spontaneous
  Country: CN (occurrence: CN)
  Receive Date: 20220801
  Receipt Date: 20220801
  Transmission Date: 20221027
  Serious: Yes (Other)
  Sender: FDA-Public Use
  Company Number: None

PATIENT
  Age: 37 Year
  Sex: Female
  Weight: 60 kg

DRUGS (2)
  1. CYCLOPHOSPHAMIDE [Suspect]
     Active Substance: CYCLOPHOSPHAMIDE
     Indication: Neoplasm malignant
     Dosage: (0.9 G, QD, CYCLOPHOSPHAMIDE FOR INJECTION (0.9 G) DILUTED WITH 0.9% SODIUM CHLORIDE INJECTION (30 M
     Route: 041
     Dates: start: 20220624, end: 20220625
  2. SODIUM CHLORIDE [Suspect]
     Active Substance: SODIUM CHLORIDE
     Indication: Medication dilution
     Dosage: (30 ML, QD, CYCLOPHOSPHAMIDE FOR INJECTION (0.9 G) DILUTED WITH 0.9% SODIUM CHLORIDE INJECTION (30 M
     Route: 041
     Dates: start: 20220624, end: 20220625

REACTIONS (3)
  - Myelosuppression [Recovering/Resolving]
  - White blood cell count decreased [Recovering/Resolving]
  - Neutrophil count decreased [Recovering/Resolving]

NARRATIVE: CASE EVENT DATE: 20220715
